FAERS Safety Report 13856717 (Version 2)
Quarter: 2017Q3

REPORT INFORMATION
  Report Type: Spontaneous
  Country: US (occurrence: US)
  Receive Date: 20170810
  Receipt Date: 20170823
  Transmission Date: 20171127
  Serious: No
  Sender: FDA-Public Use
  Company Number: US-BIOMARINAP-US-2017-114929

PATIENT
  Age: 5 Year
  Sex: Male

DRUGS (2)
  1. BRINEURA KIT (DEVICE) [Suspect]
     Active Substance: DEVICE
     Indication: INFUSION
  2. BRINEURA [Suspect]
     Active Substance: CERLIPONASE ALFA
     Indication: NEURONAL CEROID LIPOFUSCINOSIS
     Dosage: UNK UNK, QOW
     Route: 037
     Dates: start: 201706

REACTIONS (1)
  - Needle issue [Unknown]
